FAERS Safety Report 16958425 (Version 1)
Quarter: 2019Q4

REPORT INFORMATION
  Report Type: Spontaneous
  Country: ZA (occurrence: ZA)
  Receive Date: 20191024
  Receipt Date: 20191024
  Transmission Date: 20200122
  Serious: Yes (Death, Hospitalization)
  Sender: FDA-Public Use
  Company Number: PHHY2018ZA026455

PATIENT
  Sex: Male

DRUGS (1)
  1. HEXARONE 200 [Suspect]
     Active Substance: AMIODARONE
     Indication: ARRHYTHMIA
     Dosage: 200 MG, QD
     Route: 048

REACTIONS (3)
  - Intracardiac thrombus [Fatal]
  - Cardiac failure [Recovering/Resolving]
  - Ill-defined disorder [Unknown]
